FAERS Safety Report 24025692 (Version 1)
Quarter: 2024Q2

REPORT INFORMATION
  Report Type: Spontaneous
  Country: HK (occurrence: HK)
  Receive Date: 20240628
  Receipt Date: 20240628
  Transmission Date: 20240716
  Serious: No
  Sender: FDA-Public Use
  Company Number: HK-ROCHE-3399889

PATIENT
  Age: 43 Year
  Sex: Female

DRUGS (1)
  1. PHESGO [Suspect]
     Active Substance: HYALURONIDASE-ZZXF\PERTUZUMAB\TRASTUZUMAB
     Indication: Breast cancer metastatic
     Dosage: SHE HAS RECEIVED THE 17TH INJECTION
     Route: 058

REACTIONS (3)
  - Contusion [Unknown]
  - Pyrexia [Unknown]
  - Diarrhoea [Unknown]
